FAERS Safety Report 9415495 (Version 1)
Quarter: 2013Q3

REPORT INFORMATION
  Report Type: Spontaneous
  Country: US (occurrence: US)
  Receive Date: 20130723
  Receipt Date: 20130723
  Transmission Date: 20140515
  Serious: Yes (Death, Other)
  Sender: FDA-Public Use
  Company Number: US-PFIZER INC-2013212351

PATIENT
  Age: 81 Year
  Sex: Female

DRUGS (6)
  1. CELEBREX [Suspect]
     Dosage: UNK
     Route: 048
  2. XARELTO [Suspect]
     Indication: ATRIAL FIBRILLATION
     Dosage: 10 MG, 1X/DAY
     Route: 048
  3. XARELTO [Suspect]
     Indication: CEREBROVASCULAR ACCIDENT PROPHYLAXIS
  4. XARELTO [Suspect]
     Indication: HIP ARTHROPLASTY
  5. XARELTO [Suspect]
     Indication: THROMBOSIS PROPHYLAXIS
  6. XARELTO [Suspect]
     Indication: THROMBOSIS PROPHYLAXIS

REACTIONS (3)
  - Gastrointestinal haemorrhage [Fatal]
  - Acute respiratory distress syndrome [Fatal]
  - Ileus [Unknown]
